FAERS Safety Report 7522353-8 (Version None)
Quarter: 2011Q2

REPORT INFORMATION
  Report Type: 
  Country: None (occurrence: None)
  Receive Date: 20110603
  Receipt Date: 20110524
  Transmission Date: 20111010
  Serious: Yes (Life-Threatening)
  Sender: FDA-Public Use
  Company Number: PL-TYCO HEALTHCARE/MALLINCKRODT-T201101107

PATIENT
  Sex: Male

DRUGS (1)
  1. OPTIRAY 300 [Suspect]
     Indication: SCAN BRAIN
     Dosage: 40 ML, SINGLE
     Route: 042
     Dates: start: 20110412, end: 20110412

REACTIONS (1)
  - HYPERSENSITIVITY [None]
